FAERS Safety Report 13010246 (Version 1)
Quarter: 2016Q4

REPORT INFORMATION
  Report Type: Spontaneous
  Country: US (occurrence: US)
  Receive Date: 20161207
  Receipt Date: 20161207
  Transmission Date: 20170207
  Serious: No
  Sender: FDA-Public Use
  Company Number: None

PATIENT
  Age: 43 Year
  Sex: Female

DRUGS (1)
  1. COPAXONE [Suspect]
     Active Substance: GLATIRAMER ACETATE
     Indication: MULTIPLE SCLEROSIS
     Dosage: 12/05/2016 40MG TIW SQ
     Route: 058
     Dates: start: 20161205

REACTIONS (4)
  - Vomiting [None]
  - Nausea [None]
  - Asthenia [None]
  - Chills [None]

NARRATIVE: CASE EVENT DATE: 20161205
